FAERS Safety Report 17193874 (Version 1)
Quarter: 2019Q4

REPORT INFORMATION
  Report Type: Spontaneous
  Country: GB (occurrence: GB)
  Receive Date: 20191223
  Receipt Date: 20191223
  Transmission Date: 20200122
  Serious: Yes (Congenital Anomaly, Other)
  Sender: FDA-Public Use
  Company Number: GB-009507513-1912GBR008295

PATIENT
  Age: 43 Year
  Sex: Female

DRUGS (1)
  1. PEMBROLIZUMAB. [Suspect]
     Active Substance: PEMBROLIZUMAB
     Indication: ADJUVANT THERAPY
     Dosage: 400 MILLIGRAM
     Route: 042
     Dates: start: 20190906, end: 20191018

REACTIONS (1)
  - Maternal exposure during pregnancy [Unknown]
